FAERS Safety Report 9411064 (Version 3)
Quarter: 2013Q4

REPORT INFORMATION
  Report Type: Report from Study
  Country: JP (occurrence: JP)
  Receive Date: 20130720
  Receipt Date: 20131119
  Transmission Date: 20140711
  Serious: Yes (Other)
  Sender: FDA-Public Use
  Company Number: JP-ASTRAZENECA-2013SE50736

PATIENT
  Age: 32 Year
  Sex: Male

DRUGS (20)
  1. CRESTOR [Suspect]
     Indication: HYPERCHOLESTEROLAEMIA
     Route: 048
     Dates: start: 20111201, end: 20120202
  2. CRESTOR [Suspect]
     Indication: HYPERCHOLESTEROLAEMIA
     Route: 048
     Dates: start: 20120203, end: 20130606
  3. ADALAT-CR [Suspect]
     Indication: HYPERTENSION
     Route: 065
     Dates: start: 20130425
  4. DEPAKENE-R [Suspect]
     Dosage: NUMBER OF SEPARATE DOSAGES UNKNOWN
     Route: 065
     Dates: start: 20011210
  5. MUCOSOLVAN [Suspect]
     Route: 065
     Dates: start: 20130509
  6. ATELEC [Suspect]
     Indication: HYPERTENSION
     Route: 065
     Dates: start: 20100916, end: 20120927
  7. ATELEC [Suspect]
     Indication: HYPERTENSION
     Route: 065
     Dates: start: 20130509
  8. ARTIST [Suspect]
     Indication: HYPERTENSION
     Route: 065
     Dates: start: 20121025, end: 20121114
  9. ARTIST [Suspect]
     Indication: HYPERTENSION
     Route: 065
     Dates: start: 20121115
  10. DIOVAN [Suspect]
     Indication: HYPERTENSION
     Route: 065
     Dates: start: 20130509, end: 20130606
  11. CELECOX [Suspect]
     Dosage: DOSE UNKNOWN
     Route: 065
  12. EXFORGE [Suspect]
     Dosage: DOSE UNKNOWN
     Route: 048
  13. OLMETEC [Suspect]
     Indication: HYPERTENSION
     Route: 065
     Dates: start: 20100826, end: 20121115
  14. REZALTAS [Suspect]
     Indication: HYPERTENSION
     Route: 048
     Dates: start: 20121002, end: 20130425
  15. CALBLOCK [Suspect]
     Indication: HYPERTENSION
     Route: 065
     Dates: start: 20120928, end: 20121115
  16. FLUITRAN [Suspect]
     Indication: HYPERTENSION
     Route: 065
     Dates: start: 20121002, end: 20130425
  17. GLUFAST [Concomitant]
     Indication: DIABETES MELLITUS
     Dosage: NUMBER OF SEPARATE DOSAGES UNKNOWN
     Route: 065
     Dates: start: 20100607, end: 20120202
  18. LANTUS [Concomitant]
     Indication: DIABETES MELLITUS
     Dosage: NUMBER OF SEPARATE DOSAGES UNKNOWN
     Route: 065
     Dates: start: 20110728, end: 20120202
  19. SEIBULE [Concomitant]
     Indication: DIABETES MELLITUS
     Dosage: NUMBER OF SEPARATE DOSAGES UNKNOWN
     Route: 065
     Dates: start: 20111027, end: 20120202
  20. NOVORAPID [Concomitant]
     Indication: DIABETES MELLITUS
     Dosage: NUMBER OF SEPARATE DOSAGES UNKNOWN
     Route: 065
     Dates: start: 20120202

REACTIONS (1)
  - Blood creatinine increased [Unknown]
